FAERS Safety Report 9343825 (Version 1)
Quarter: 2013Q2

REPORT INFORMATION
  Report Type: Spontaneous
  Country: US (occurrence: US)
  Receive Date: 20130612
  Receipt Date: 20130612
  Transmission Date: 20140414
  Serious: No
  Sender: FDA-Public Use
  Company Number: US-009507513-1306USA004650

PATIENT
  Age: 55 Year
  Sex: Male
  Weight: 81.63 kg

DRUGS (4)
  1. VICTRELIS [Suspect]
     Dosage: 200 MG, 4 CAPSULES THRICE A DAY, 7-9 HOURS APART WITH A SNACK
     Route: 048
  2. PEGASYS [Suspect]
     Dosage: 180 MICROGRAM/M
     Route: 058
  3. HUMALOG MIX [Concomitant]
     Dosage: 75/25 KWP
     Route: 058
  4. LOTREL [Concomitant]
     Dosage: 2.5-10 MG
     Route: 048

REACTIONS (1)
  - White blood cell count decreased [Unknown]
